FAERS Safety Report 7809769 (Version 2)
Quarter: 2013Q1

REPORT INFORMATION
  Report Type: Spontaneous
  Country: DE (occurrence: DE)
  Receive Date: 20110211
  Receipt Date: 20130318
  Transmission Date: 20140127
  Serious: Yes (Hospitalization, Disabling, Other)
  Sender: FDA-Public Use
  Company Number: DE-ASTRAZENECA-2011SE06731

PATIENT
  Age: 69 Year
  Sex: Female
  Weight: 70 kg

DRUGS (2)
  1. BRILIQUE [Suspect]
     Indication: ACUTE MYOCARDIAL INFARCTION
     Route: 048
     Dates: start: 20110204, end: 20110205
  2. CLARITHROMYCIN [Interacting]
     Indication: PNEUMONIA
     Route: 048
     Dates: start: 20110204, end: 20110205

REACTIONS (9)
  - Drug interaction [Not Recovered/Not Resolved]
  - Transaminases increased [Unknown]
  - Apathy [Not Recovered/Not Resolved]
  - Fall [Unknown]
  - Delirium [Unknown]
  - Hallucination [Unknown]
  - Depressed level of consciousness [Unknown]
  - Disorientation [Not Recovered/Not Resolved]
  - Cephalhaematoma [Unknown]
